FAERS Safety Report 4395761-4 (Version None)
Quarter: 2004Q3

REPORT INFORMATION
  Report Type: 
  Country: None (occurrence: None)
  Receive Date: 20040707
  Receipt Date: 20040625
  Transmission Date: 20050211
  Serious: Yes (Hospitalization)
  Sender: FDA-Public Use
  Company Number: GB-JNJFOC-20040606829

PATIENT
  Sex: Male
  Weight: 25 kg

DRUGS (2)
  1. CONCERTA [Suspect]
     Indication: DRUG USE FOR UNKNOWN INDICATION
     Dosage: 54MG IN 1 DAY; ORAL
     Route: 048
     Dates: start: 20040515, end: 20040518
  2. MELATONIN (UNKNOWN) MELATONIN [Concomitant]

REACTIONS (6)
  - DELUSION [None]
  - EXTRAPYRAMIDAL DISORDER [None]
  - HALLUCINATION, AUDITORY [None]
  - HYPOTHERMIA [None]
  - MEDICATION ERROR [None]
  - PHOTOSENSITIVITY REACTION [None]
